FAERS Safety Report 7164432-3 (Version None)
Quarter: 2010Q4

REPORT INFORMATION
  Report Type: 
  Country: None (occurrence: None)
  Receive Date: 20101201
  Receipt Date: 20101115
  Transmission Date: 20110411
  Serious: Yes (Other)
  Sender: FDA-Public Use
  Company Number: 755781

PATIENT
  Sex: Female

DRUGS (1)
  1. MIDAZOLAM HYDROCHLORIDE PRESERVATIVE FREE [Suspect]
     Indication: PRODUCT USED FOR UNKNOWN INDICATION
     Dosage: 2 MG,
     Dates: start: 20101101

REACTIONS (3)
  - CRYING [None]
  - HICCUPS [None]
  - RESPIRATION ABNORMAL [None]
